FAERS Safety Report 8301201-2 (Version None)
Quarter: 2012Q2

REPORT INFORMATION
  Report Type: 
  Country: None (occurrence: None)
  Receive Date: 20120420
  Receipt Date: 20120420
  Transmission Date: 20120825
  Serious: Yes (Disabling, Other)
  Sender: FDA-Public Use
  Company Number: None

PATIENT
  Age: 49 Year
  Sex: Female
  Weight: 90.718 kg

DRUGS (1)
  1. CIPROFLOXACIN [Suspect]
     Indication: URINARY TRACT INFECTION
     Dosage: 1 TABLET
     Route: 048
     Dates: start: 20110616, end: 20110616

REACTIONS (4)
  - FATIGUE [None]
  - TENDON RUPTURE [None]
  - NEURALGIA [None]
  - URINARY TRACT INFECTION [None]
